FAERS Safety Report 14615079 (Version 1)
Quarter: 2018Q1

REPORT INFORMATION
  Report Type: Report from Study
  Country: JP (occurrence: JP)
  Receive Date: 20180308
  Receipt Date: 20180308
  Transmission Date: 20180509
  Serious: Yes (Death, Hospitalization)
  Sender: FDA-Public Use
  Company Number: JP-ELI_LILLY_AND_COMPANY-JP201802012418

PATIENT
  Age: 66 Year
  Sex: Male
  Weight: 53 kg

DRUGS (3)
  1. PACLITAXEL. [Concomitant]
     Active Substance: PACLITAXEL
     Dosage: 100 MG, CYCLICAL
     Route: 042
     Dates: start: 20170210, end: 20170217
  2. RAMUCIRUMAB [Suspect]
     Active Substance: RAMUCIRUMAB
     Indication: GASTRIC CANCER STAGE IV
     Dosage: 432 MG, CYCLICAL
     Route: 042
     Dates: start: 20161209, end: 20170210
  3. PACLITAXEL. [Concomitant]
     Active Substance: PACLITAXEL
     Indication: GASTRIC CANCER STAGE IV
     Dosage: 125 MG, CYCLICAL
     Route: 042
     Dates: start: 20161216, end: 20170120

REACTIONS (2)
  - Hyponatraemia [Recovering/Resolving]
  - Epistaxis [Recovered/Resolved]

NARRATIVE: CASE EVENT DATE: 20170317
